FAERS Safety Report 4627094-2 (Version None)
Quarter: 2005Q2

REPORT INFORMATION
  Report Type: 
  Country: None (occurrence: None)
  Receive Date: 20050401
  Receipt Date: 20050401
  Transmission Date: 20051028
  Serious: Yes (Hospitalization)
  Sender: FDA-Public Use
  Company Number: None

PATIENT
  Age: 62 Year
  Sex: Female
  Weight: 70 kg

DRUGS (16)
  1. CARBOPLATIN [Suspect]
     Indication: NON-SMALL CELL LUNG CANCER
     Dosage: 215 MG QD INTRAVENOUS
     Route: 042
     Dates: start: 20040820, end: 20040820
  2. GEMCITABINE [Suspect]
     Dosage: 805 MG QD INTRAVENOUS
     Route: 042
     Dates: start: 20040820, end: 20040820
  3. SUCRALFATE [Concomitant]
  4. PROMETHAZINE [Concomitant]
  5. METOCLOPRAMIDE [Concomitant]
  6. NEUTRA-PHOS-K [Concomitant]
  7. POTASSIUM CHLORIDE [Concomitant]
  8. VICODIN [Concomitant]
  9. LACTULOSE [Concomitant]
  10. PANTOPRAZOLE SODIUM [Concomitant]
  11. COSTANZI SOLUTION [Concomitant]
  12. ONDANSETRON KCL [Concomitant]
  13. O2 [Concomitant]
  14. PROMETHAZINE [Concomitant]
  15. GLIPIZIDE [Concomitant]
  16. ENALAPRIL [Concomitant]

REACTIONS (6)
  - CHEST PAIN [None]
  - DYSPHAGIA [None]
  - HAEMATEMESIS [None]
  - HYPOKALAEMIA [None]
  - NAUSEA [None]
  - VOMITING [None]
